FAERS Safety Report 25756341 (Version 2)
Quarter: 2025Q3

REPORT INFORMATION
  Report Type: Report from Study
  Country: US (occurrence: US)
  Receive Date: 20250903
  Receipt Date: 20250925
  Transmission Date: 20251020
  Serious: Yes (Other)
  Sender: UCB
  Company Number: US-UCBSA-2025053752

PATIENT
  Sex: Male
  Weight: 104 kg

DRUGS (1)
  1. FINTEPLA [Suspect]
     Active Substance: FENFLURAMINE
     Indication: Lennox-Gastaut syndrome
     Dosage: 5.9 MILLILITER, 2X/DAY (BID)
     Dates: start: 202508

REACTIONS (5)
  - Tricuspid valve incompetence [Unknown]
  - Pulmonary valve incompetence [Unknown]
  - Pneumonia [Not Recovered/Not Resolved]
  - Haematochezia [Not Recovered/Not Resolved]
  - Right ventricular dilatation [Unknown]

NARRATIVE: CASE EVENT DATE: 20250101
